FAERS Safety Report 15867455 (Version 2)
Quarter: 2019Q1

REPORT INFORMATION
  Report Type: Spontaneous
  Country: US (occurrence: US)
  Receive Date: 20190125
  Receipt Date: 20190225
  Transmission Date: 20190417
  Serious: No
  Sender: FDA-Public Use
  Company Number: US-APOTEX-2019AP005232

PATIENT
  Age: 48 Year
  Sex: Male

DRUGS (1)
  1. BALSALAZIDE DISODIUM. [Suspect]
     Active Substance: BALSALAZIDE DISODIUM
     Indication: CROHN^S DISEASE
     Dosage: UNK
     Route: 065

REACTIONS (1)
  - Rash generalised [Not Recovered/Not Resolved]
